FAERS Safety Report 10314391 (Version 1)
Quarter: 2014Q3

REPORT INFORMATION
  Report Type: Spontaneous
  Country: CH (occurrence: CH)
  Receive Date: 20140718
  Receipt Date: 20140718
  Transmission Date: 20150326
  Serious: Yes (Life-Threatening, Hospitalization)
  Sender: FDA-Public Use
  Company Number: CH-PFIZER INC-2014199290

PATIENT
  Age: 76 Year
  Sex: Male

DRUGS (4)
  1. MULTAQ [Concomitant]
     Active Substance: DRONEDARONE
     Dosage: 400 MG, FREQUENCY UNKNOWN
  2. CANDESARTAN CILEXETIL. [Suspect]
     Active Substance: CANDESARTAN CILEXETIL
     Indication: HYPERTENSION
     Dosage: 16 MG, UNKNOWN FREQUENCY
     Route: 048
     Dates: start: 20140114
  3. CELEBREX [Suspect]
     Active Substance: CELECOXIB
     Dosage: 200 MG, FREQUENCY UNKNOWN
     Route: 048
     Dates: start: 20140114
  4. ASPIRIN CARDIO [Concomitant]
     Active Substance: ASPIRIN

REACTIONS (1)
  - Atrial fibrillation [Unknown]

NARRATIVE: CASE EVENT DATE: 20140128
